FAERS Safety Report 8788768 (Version 3)
Quarter: 2012Q4

REPORT INFORMATION
  Report Type: 
  Country: PR (occurrence: PR)
  Receive Date: 20120915
  Receipt Date: 20120928
  Transmission Date: 20130627
  Serious: Yes (Hospitalization)
  Sender: FDA-Public Use
  Company Number: PR-ABBOTT-12P-131-0972014-00

PATIENT
  Age: 32 Year
  Sex: Female
  Weight: 64.01 kg

DRUGS (13)
  1. HUMIRA 40 MG/ 0.8 ML PRE-FILLED SYRINGE [Suspect]
     Indication: RHEUMATOID ARTHRITIS
     Route: 058
     Dates: start: 201003
  2. NEURONTIN [Concomitant]
     Indication: INTERVERTEBRAL DISC PROTRUSION
     Route: 048
     Dates: start: 2009
  3. RISPERDAL [Concomitant]
     Indication: DEPRESSION
     Dates: start: 2009
  4. TRAMADOL [Concomitant]
     Indication: INTERVERTEBRAL DISC PROTRUSION
     Route: 048
     Dates: start: 200905
  5. DOLOGESIC [Concomitant]
     Indication: RHEUMATOID ARTHRITIS
     Route: 048
     Dates: start: 2009
  6. FOLIC ACID [Concomitant]
     Indication: RHEUMATOID ARTHRITIS
     Route: 048
     Dates: start: 2009
  7. MEDROL [Concomitant]
     Indication: RHEUMATOID ARTHRITIS
     Route: 048
     Dates: start: 2009
  8. METHOTREXATE [Concomitant]
     Indication: RHEUMATOID ARTHRITIS
     Route: 048
     Dates: start: 2009
  9. RESTORIL [Concomitant]
     Indication: DEPRESSION
     Dosage: at bedtime
     Route: 048
     Dates: start: 2009
  10. CYMBALTA [Concomitant]
     Indication: DEPRESSION
     Route: 048
     Dates: start: 2010
  11. SEREVENT [Concomitant]
     Indication: ASTHMA
     Route: 055
     Dates: start: 201203
  12. ALBUTEROL [Concomitant]
     Indication: ASTHMA
     Route: 055
  13. SINGULAR [Concomitant]
     Indication: ASTHMA
     Route: 048
     Dates: start: 2011

REACTIONS (1)
  - Bronchitis [Not Recovered/Not Resolved]
